FAERS Safety Report 5077403-8 (Version None)
Quarter: 2006Q3

REPORT INFORMATION
  Report Type: 
  Country: None (occurrence: None)
  Receive Date: 20060810
  Receipt Date: 20060214
  Transmission Date: 20061208
  Serious: No
  Sender: FDA-Public Use
  Company Number: US-GLAXOSMITHKLINE-A0593683A

PATIENT
  Sex: Female

DRUGS (6)
  1. PAROXETINE HCL [Suspect]
     Indication: DEPRESSION
     Dosage: 10MG PER DAY
     Route: 048
     Dates: start: 20050101, end: 20060101
  2. CELEBREX [Concomitant]
  3. BONIVA [Concomitant]
  4. ALTACE [Concomitant]
  5. AVAPRO [Concomitant]
  6. LASIX [Concomitant]

REACTIONS (1)
  - DRUG INEFFECTIVE [None]
